FAERS Safety Report 14305052 (Version 1)
Quarter: 2017Q4

REPORT INFORMATION
  Report Type: Spontaneous
  Country: JP (occurrence: JP)
  Receive Date: 20171219
  Receipt Date: 20171219
  Transmission Date: 20180321
  Serious: Yes (Hospitalization, Other)
  Sender: FDA-Public Use
  Company Number: JP-OTSUKA-006690

PATIENT
  Age: 62 Year
  Sex: Male
  Weight: 56 kg

DRUGS (18)
  1. FLUNITRAZEPAM [Concomitant]
     Active Substance: FLUNITRAZEPAM
     Dosage: TABS
  2. ABILIFY [Suspect]
     Active Substance: ARIPIPRAZOLE
     Indication: SCHIZOPHRENIA
  3. CHLORPROMAZINE HYDROCHLORIDE. [Suspect]
     Active Substance: CHLORPROMAZINE HYDROCHLORIDE
     Indication: HALLUCINATION
     Dosage: 100 MG, TID
     Route: 048
     Dates: start: 19720416, end: 20090519
  4. ABILIFY [Suspect]
     Active Substance: ARIPIPRAZOLE
     Indication: HALLUCINATION
     Dosage: 6 MG, BID
     Route: 048
     Dates: start: 20090514, end: 20090517
  5. LUNAPRON [Suspect]
     Active Substance: BROMPERIDOL
     Indication: HALLUCINATION
     Dosage: 6 MG, TID
     Route: 048
     Dates: end: 20090519
  6. SENNOSIDE [Concomitant]
     Active Substance: SENNOSIDES
     Indication: CONSTIPATION
     Dosage: 24 MG, QD
     Route: 048
     Dates: start: 19720416
  7. LUNAPRON [Suspect]
     Active Substance: BROMPERIDOL
     Indication: DELUSION
  8. SENNA [Concomitant]
     Active Substance: SENNA LEAF\SENNOSIDES\SENNOSIDES A AND B
     Dosage: TABS
     Dates: start: 19720416
  9. ABILIFY [Suspect]
     Active Substance: ARIPIPRAZOLE
     Indication: DELUSION
  10. TRIHEXIN [Suspect]
     Active Substance: TRIHEXYPHENIDYL HYDROCHLORIDE
     Indication: DELUSION
  11. CHLORPROMAZINE. [Suspect]
     Active Substance: CHLORPROMAZINE
     Indication: HALLUCINATION
     Dosage: 100 MG, TID
     Route: 048
     Dates: start: 19720416, end: 20090519
  12. TRIHEXIN [Suspect]
     Active Substance: TRIHEXYPHENIDYL HYDROCHLORIDE
     Indication: HALLUCINATION
     Dosage: 2 MG, TID
     Route: 048
     Dates: start: 19720416, end: 20090519
  13. CHLORPROMAZINE. [Suspect]
     Active Substance: CHLORPROMAZINE
     Indication: DELUSION
  14. RAVONA [Concomitant]
     Indication: INSOMNIA
     Dosage: 50 MG, QD
     Route: 048
     Dates: start: 19720416
  15. CERCINE [Concomitant]
     Active Substance: DIAZEPAM
     Indication: ANXIETY
     Dosage: 5 MG, TID
     Route: 048
     Dates: start: 19720416
  16. CHLORPROMAZINE HYDROCHLORIDE. [Suspect]
     Active Substance: CHLORPROMAZINE HYDROCHLORIDE
     Indication: DELUSION
  17. FLUNITRAZEPAM [Concomitant]
     Active Substance: FLUNITRAZEPAM
     Indication: INSOMNIA
     Dosage: 2 MG, QD
     Route: 048
  18. NIFLAN [Concomitant]
     Active Substance: PRANOPROFEN
     Indication: ANTIPYRESIS
     Dosage: 75 MG, TID
     Route: 048
     Dates: start: 20090516, end: 20090517

REACTIONS (5)
  - Neuroleptic malignant syndrome [Recovered/Resolved]
  - Lymphocyte count increased [Recovered/Resolved]
  - Ileus paralytic [Recovered/Resolved]
  - Agranulocytosis [Recovered/Resolved]
  - Dysuria [Recovered/Resolved]

NARRATIVE: CASE EVENT DATE: 20090516
